FAERS Safety Report 9184589 (Version 1)
Quarter: 2013Q1

REPORT INFORMATION
  Report Type: Spontaneous
  Country: US (occurrence: US)
  Receive Date: 20130324
  Receipt Date: 20130324
  Transmission Date: 20140127
  Serious: Yes (Other)
  Sender: FDA-Public Use
  Company Number: CHPA2013US004921

PATIENT
  Age: 5 Year
  Sex: Male

DRUGS (2)
  1. EX-LAX REG STR CHOCOLATED LAX PCS SEN [Suspect]
     Indication: CONSTIPATION
     Dosage: UNK, AS NEEDED
     Route: 048
  2. EX-LAX REG STR CHOCOLATED LAX PCS SEN [Suspect]
     Dosage: UNK, QD

REACTIONS (3)
  - Diabetes mellitus [Not Recovered/Not Resolved]
  - Incorrect drug administration duration [Unknown]
  - Prescribed overdose [Unknown]
